FAERS Safety Report 5630541-0 (Version None)
Quarter: 2008Q1

REPORT INFORMATION
  Report Type: 
  Country: None (occurrence: None)
  Receive Date: 20080219
  Receipt Date: 20080219
  Transmission Date: 20080703
  Serious: Yes (Other)
  Sender: FDA-Public Use
  Company Number: A0710476A

PATIENT
  Age: 38 Year
  Sex: Female

DRUGS (1)
  1. ALLI [Suspect]
     Route: 048
     Dates: start: 20080128, end: 20080218

REACTIONS (4)
  - NAUSEA [None]
  - RESPIRATORY DISORDER [None]
  - SYNCOPE [None]
  - VOMITING [None]
